FAERS Safety Report 5231164-8 (Version None)
Quarter: 2007Q1

REPORT INFORMATION
  Report Type: 
  Country: None (occurrence: None)
  Receive Date: 20070205
  Receipt Date: 20070205
  Transmission Date: 20070707
  Serious: Yes (Hospitalization)
  Sender: FDA-Public Use
  Company Number: None

PATIENT
  Sex: Male
  Weight: 67.8 kg

DRUGS (2)
  1. CARBOPLATIN [Suspect]
     Dosage: AUC 6 Q 3 WKS IV
     Route: 042
  2. TAXOL [Suspect]
     Dosage: 100 MG/M2 Q WEEK IV
     Route: 042

REACTIONS (2)
  - PNEUMONIA [None]
  - TUBERCULOSIS [None]
